FAERS Safety Report 7368883-3 (Version None)
Quarter: 2011Q1

REPORT INFORMATION
  Report Type: 
  Country: None (occurrence: None)
  Receive Date: 20110310
  Receipt Date: 20110301
  Transmission Date: 20110831
  Serious: Yes (Death, Hospitalization, Other)
  Sender: FDA-Public Use
  Company Number: 2011SP000433

PATIENT
  Age: 62 Year
  Sex: Male
  Weight: 101 kg

DRUGS (24)
  1. ABT-888 [Suspect]
     Indication: PROSTATE CANCER
     Dosage: 40 MG;BID;PO
     Route: 048
     Dates: start: 20100810, end: 20101108
  2. LOSARTAN POTASSIUM [Concomitant]
  3. TAMSULOSIN HCL [Concomitant]
  4. GLIPIZIDE [Concomitant]
  5. IBUPROFEN [Concomitant]
  6. ACETYLSALICYLIC ACID [Concomitant]
  7. CENTRUM SILVER [Concomitant]
  8. ATENOLOL [Concomitant]
  9. IBUPROFEN [Concomitant]
  10. MEGESTROL ACETATE [Concomitant]
  11. LACTULOSE [Concomitant]
  12. LEKOVIT [Concomitant]
  13. COLECALCIFEROL [Concomitant]
  14. LEUPROLIDE ACETATE [Concomitant]
  15. ZOLEDRONIC ACID [Concomitant]
  16. MS CONTIN [Concomitant]
  17. SENNA ALEXANDRINA [Concomitant]
  18. CORICIDIN [Concomitant]
  19. MEGESTROL ACETATE [Concomitant]
  20. TEMOZOLOMIDE [Suspect]
     Indication: PROSTATE CANCER
     Dosage: PO
     Route: 048
     Dates: start: 20100810
  21. TYLOX [Concomitant]
  22. INSULIN HUMAN INJECTION, ISOPHANE [Concomitant]
  23. NSULIN HUMAN [Concomitant]
  24. FUROSEMIDE [Concomitant]

REACTIONS (23)
  - PNEUMONIA [None]
  - HAEMOPTYSIS [None]
  - PROSTATE CANCER [None]
  - ALANINE AMINOTRANSFERASE INCREASED [None]
  - HEPATORENAL SYNDROME [None]
  - INFECTION [None]
  - COLD SWEAT [None]
  - ANAEMIA [None]
  - BLOOD GLUCOSE INCREASED [None]
  - ASPARTATE AMINOTRANSFERASE INCREASED [None]
  - OXYGEN SATURATION DECREASED [None]
  - THROMBOCYTOPENIA [None]
  - PAIN IN JAW [None]
  - HYPOTENSION [None]
  - METASTASES TO LIVER [None]
  - NEOPLASM MALIGNANT [None]
  - EPISTAXIS [None]
  - HEPATIC FAILURE [None]
  - RESPIRATORY FAILURE [None]
  - PRODUCTIVE COUGH [None]
  - DYSPNOEA [None]
  - RENAL FAILURE [None]
  - BLOOD LACTATE DEHYDROGENASE INCREASED [None]
